FAERS Safety Report 8556860-6 (Version None)
Quarter: 2012Q3

REPORT INFORMATION
  Report Type: 
  Country: None (occurrence: None)
  Receive Date: 20120801
  Receipt Date: 20120724
  Transmission Date: 20120928
  Serious: No
  Sender: FDA-Public Use
  Company Number: US-VERTEX PHARMACEUTICALS INC.-AE-2012-008400

PATIENT
  Sex: Male

DRUGS (3)
  1. RIBAVIRIN [Concomitant]
     Indication: HEPATITIS C
     Route: 048
     Dates: start: 20120514
  2. INCIVEK [Suspect]
     Indication: HEPATITIS C
     Route: 048
     Dates: start: 20120523
  3. PEGASYS [Concomitant]
     Indication: HEPATITIS C
     Route: 058

REACTIONS (5)
  - HEADACHE [None]
  - ANAL PRURITUS [None]
  - NAUSEA [None]
  - RASH [None]
  - ANORECTAL DISCOMFORT [None]
